FAERS Safety Report 9528784 (Version 1)
Quarter: 2013Q1

REPORT INFORMATION
  Report Type: Spontaneous
  Country: CA (occurrence: None)
  Receive Date: 20130322
  Receipt Date: 20130322
  Transmission Date: 20140127
  Serious: No
  Sender: FDA-Public Use
  Company Number: 3-1112-32

PATIENT
  Age: 58 Year
  Sex: Male

DRUGS (2)
  1. DERMOTIC [Suspect]
     Indication: ECZEMA
     Dosage: TOPICAL
     Route: 061
  2. DERMOTIC [Suspect]
     Indication: EAR DISORDER
     Dosage: TOPICAL
     Route: 061

REACTIONS (3)
  - Product taste abnormal [None]
  - Abdominal pain upper [None]
  - Abdominal discomfort [None]
